FAERS Safety Report 7535776-8 (Version None)
Quarter: 2011Q2

REPORT INFORMATION
  Report Type: 
  Country: None (occurrence: None)
  Receive Date: 20110609
  Receipt Date: 20110324
  Transmission Date: 20111010
  Serious: No
  Sender: FDA-Public Use
  Company Number: US-KINGPHARMUSA00001-K201100334

PATIENT
  Age: 53 Year
  Sex: Male
  Weight: 84.354 kg

DRUGS (7)
  1. SINGULAIR [Concomitant]
     Indication: ASTHMA
     Dosage: UNK
  2. HYDROCODONE BITARTRATE [Concomitant]
     Indication: BACK PAIN
     Dosage: UNK
  3. NEXIUM [Concomitant]
     Indication: REFLUX GASTRITIS
     Dosage: UNK
  4. TRAZODONE HCL [Concomitant]
     Indication: INSOMNIA
     Dosage: UNK
  5. XANAX [Concomitant]
     Indication: ANXIETY
     Dosage: UNK
  6. EMBEDA [Suspect]
     Indication: BACK PAIN
     Dosage: 60 MG, BID
     Route: 048
     Dates: start: 20090101, end: 20110301
  7. FORADIL [Concomitant]
     Indication: ASTHMA
     Dosage: UNK

REACTIONS (1)
  - MUSCLE SPASMS [None]
